APPROVED DRUG PRODUCT: DAPSONE
Active Ingredient: DAPSONE
Strength: 7.5%
Dosage Form/Route: GEL;TOPICAL
Application: A213847 | Product #001 | TE Code: AB
Applicant: MYLAN PHARMACEUTICALS INC
Approved: Feb 4, 2022 | RLD: No | RS: No | Type: RX